FAERS Safety Report 9479680 (Version 1)
Quarter: 2013Q3

REPORT INFORMATION
  Report Type: Report from Study
  Country: AU (occurrence: AU)
  Receive Date: 20130827
  Receipt Date: 20130827
  Transmission Date: 20140515
  Serious: Yes (Hospitalization, Other)
  Sender: FDA-Public Use
  Company Number: PHHY2011AU118436

PATIENT
  Age: 48 Year
  Sex: Female

DRUGS (1)
  1. ACLASTA [Suspect]
     Dosage: 5 MG, UNK
     Route: 042
     Dates: start: 20100618

REACTIONS (5)
  - Decubitus ulcer [Unknown]
  - Quadriplegia [Unknown]
  - Device difficult to use [Unknown]
  - Pneumonia [Unknown]
  - Malaise [Unknown]
